FAERS Safety Report 23516408 (Version 1)
Quarter: 2024Q1

REPORT INFORMATION
  Report Type: Spontaneous
  Country: CN (occurrence: CN)
  Receive Date: 20240213
  Receipt Date: 20240213
  Transmission Date: 20240410
  Serious: No
  Sender: FDA-Public Use
  Company Number: CN-ALKEM LABORATORIES LIMITED-CN-ALKEM-2023-16642

PATIENT
  Age: 53 Year
  Sex: Male

DRUGS (8)
  1. LINEZOLID [Interacting]
     Active Substance: LINEZOLID
     Indication: Tuberculosis
     Dosage: 0.6 GRAM, BID
     Route: 042
  2. LINEZOLID [Interacting]
     Active Substance: LINEZOLID
     Indication: Bacterial infection
  3. RIFAMPIN [Interacting]
     Active Substance: RIFAMPIN
     Indication: Pulmonary tuberculosis
     Dosage: 0.45 GRAM, QD
     Route: 065
  4. ETHAMBUTOL [Concomitant]
     Active Substance: ETHAMBUTOL HYDROCHLORIDE
     Indication: Pulmonary tuberculosis
     Dosage: 0.75 GRAM, QD
     Route: 065
  5. ISONIAZID [Concomitant]
     Active Substance: ISONIAZID
     Indication: Pulmonary tuberculosis
     Dosage: 0.3 GRAM, QD
     Route: 065
  6. MEROPENEM [Concomitant]
     Active Substance: MEROPENEM
     Indication: Infection
     Dosage: 1.0 GRAM, QID
     Route: 065
  7. ORNIDAZOLE [Concomitant]
     Active Substance: ORNIDAZOLE
     Indication: Infection
     Dosage: 0.5 GRAM, TID
     Route: 065
  8. PENICILLIN SODIUM [Concomitant]
     Active Substance: PENICILLIN G SODIUM
     Indication: Infection
     Dosage: 4 MILLION INTERNATIONAL UNIT (Q 4 HOURS, 6 TIMES A DAY))
     Route: 065

REACTIONS (2)
  - Drug level decreased [Recovering/Resolving]
  - Drug interaction [Unknown]
